FAERS Safety Report 8980799 (Version 1)
Quarter: 2012Q4

REPORT INFORMATION
  Report Type: 
  Country: US (occurrence: US)
  Receive Date: 20121221
  Receipt Date: 20121221
  Transmission Date: 20130627
  Serious: Yes (Hospitalization)
  Sender: FDA-Public Use
  Company Number: US-ELI_LILLY_AND_COMPANY-US201212005548

PATIENT
  Age: 22 Year
  Sex: Female

DRUGS (2)
  1. FORTEO [Suspect]
     Indication: OSTEOPOROSIS
     Dosage: 20 ug, qd
  2. FORTEO [Suspect]
     Dosage: 20 ug, qd

REACTIONS (3)
  - Peroneal nerve palsy [Not Recovered/Not Resolved]
  - Neurological symptom [Not Recovered/Not Resolved]
  - Arthralgia [Recovering/Resolving]
